FAERS Safety Report 17814228 (Version 1)
Quarter: 2020Q2

REPORT INFORMATION
  Report Type: Spontaneous
  Country: FR (occurrence: FR)
  Receive Date: 20200522
  Receipt Date: 20200522
  Transmission Date: 20200714
  Serious: Yes (Hospitalization)
  Sender: FDA-Public Use
  Company Number: FR-SUN PHARMACEUTICAL INDUSTRIES LTD-2020RR-248032

PATIENT
  Age: 56 Year
  Sex: Male
  Weight: 78 kg

DRUGS (3)
  1. TAMSULOSIN [Suspect]
     Active Substance: TAMSULOSIN
     Indication: PROSTATIC ADENOMA
     Dosage: 0.4 MILLIGRAMS, DAILY
     Route: 048
     Dates: start: 2016
  2. AVODART [Suspect]
     Active Substance: DUTASTERIDE
     Indication: PROSTATIC ADENOMA
     Dosage: 0.5 MILLIGRAM, DAILY
     Route: 048
     Dates: start: 2016
  3. REBIF [Suspect]
     Active Substance: INTERFERON BETA-1A
     Indication: MULTIPLE SCLEROSIS
     Dosage: 132 MICROGRAM, WEEKLY
     Route: 058
     Dates: start: 20131206

REACTIONS (3)
  - Ejection fraction decreased [Not Recovered/Not Resolved]
  - Bundle branch block left [Not Recovered/Not Resolved]
  - Ventricular dysfunction [Not Recovered/Not Resolved]

NARRATIVE: CASE EVENT DATE: 201910
